FAERS Safety Report 25035796 (Version 1)
Quarter: 2025Q1

REPORT INFORMATION
  Report Type: Spontaneous
  Country: US (occurrence: None)
  Receive Date: 20250303
  Receipt Date: 20250303
  Transmission Date: 20250408
  Serious: No
  Sender: FDA-CTU
  Company Number: None

PATIENT
  Age: 7 Year
  Sex: Male

DRUGS (1)
  1. EPIDIOLEX [Suspect]
     Active Substance: CANNABIDIOL
     Indication: Lennox-Gastaut syndrome
     Dosage: FREQUENCY : TWICE A DAY;?
     Route: 048
     Dates: start: 20220602

REACTIONS (6)
  - Pyrexia [None]
  - Fatigue [None]
  - Nausea [None]
  - Vomiting [None]
  - Otitis media [None]
  - Night blindness [None]

NARRATIVE: CASE EVENT DATE: 20250216
